FAERS Safety Report 4535451-8 (Version None)
Quarter: 2004Q4

REPORT INFORMATION
  Report Type: 
  Country: None (occurrence: None)
  Receive Date: 20041222
  Receipt Date: 20030605
  Transmission Date: 20050328
  Serious: Yes (Other)
  Sender: FDA-Public Use
  Company Number: US-MERCK-0306USA00764

PATIENT
  Age: 37 Year
  Sex: Male
  Weight: 78 kg

DRUGS (2)
  1. VIOXX [Suspect]
     Route: 048
     Dates: start: 20010501
  2. VIOXX [Suspect]
     Route: 065
     Dates: start: 20011001

REACTIONS (35)
  - ADVERSE EVENT [None]
  - AMAUROSIS FUGAX [None]
  - ANGINA PECTORIS [None]
  - AORTIC VALVE INCOMPETENCE [None]
  - ARTHRALGIA [None]
  - BACK PAIN [None]
  - BENIGN NEOPLASM OF EYELID [None]
  - BICUSPID AORTIC VALVE [None]
  - BLINDNESS TRANSIENT [None]
  - BLOOD CHOLESTEROL INCREASED [None]
  - BLOOD PRESSURE INCREASED [None]
  - CARDIAC MURMUR [None]
  - CARDIOLIPIN ANTIBODY POSITIVE [None]
  - CERVICAL VERTEBRA INJURY [None]
  - CHEST PAIN [None]
  - CONVULSION [None]
  - DIZZINESS [None]
  - DYSPNOEA [None]
  - ECCHYMOSIS [None]
  - FATIGUE [None]
  - FLUSHING [None]
  - HEADACHE [None]
  - HYPOAESTHESIA [None]
  - HYPOTHYROIDISM [None]
  - MUSCLE STRAIN [None]
  - MYALGIA [None]
  - PALPITATIONS [None]
  - PARAESTHESIA [None]
  - PERIORBITAL DISORDER [None]
  - SENSORY LEVEL ABNORMAL [None]
  - SINUS BRADYCARDIA [None]
  - TENDONITIS [None]
  - THYROIDITIS [None]
  - TRANSIENT ISCHAEMIC ATTACK [None]
  - VENTRICULAR HYPERTROPHY [None]
